FAERS Safety Report 4526672-9 (Version None)
Quarter: 2004Q4

REPORT INFORMATION
  Report Type: 
  Country: None (occurrence: None)
  Receive Date: 20041213
  Receipt Date: 20041130
  Transmission Date: 20050328
  Serious: Yes (Other)
  Sender: FDA-Public Use
  Company Number: 2004103798

PATIENT
  Age: 64 Year
  Sex: Female
  Weight: 58.514 kg

DRUGS (2)
  1. CELEBREX [Suspect]
     Indication: ARTHRALGIA
     Dosage: 400 MG (200 MG, 2 IN 1 D), ORAL
     Route: 048
     Dates: start: 20041101
  2. OXYCODONE HCL [Suspect]
     Indication: ILL-DEFINED DISORDER
     Dosage: 20 MG (10 MG, 2 IN 1 D), ORAL
     Route: 048
     Dates: start: 20041101

REACTIONS (3)
  - BLOOD URIC ACID INCREASED [None]
  - DYSPNOEA [None]
  - PULMONARY OEDEMA [None]
